FAERS Safety Report 24012306 (Version 2)
Quarter: 2024Q3

REPORT INFORMATION
  Report Type: Spontaneous
  Country: JP (occurrence: JP)
  Receive Date: 20240625
  Receipt Date: 20240703
  Transmission Date: 20241017
  Serious: No
  Sender: GLAXOSMITHKLINE
  Company Number: JP-GSKNCCC-Case-02005764_AE-84626

PATIENT

DRUGS (1)
  1. VALTREX [Suspect]
     Active Substance: VALACYCLOVIR HYDROCHLORIDE
     Indication: Antiviral prophylaxis
     Dosage: 500 MG, 1D

REACTIONS (2)
  - Product use in unapproved indication [Unknown]
  - Off label use [Unknown]
